FAERS Safety Report 17954537 (Version 2)
Quarter: 2020Q3

REPORT INFORMATION
  Report Type: Spontaneous
  Country: MY (occurrence: MY)
  Receive Date: 20200629
  Receipt Date: 20200707
  Transmission Date: 20201103
  Serious: Yes (Life-Threatening, Hospitalization)
  Sender: FDA-Public Use
  Company Number: MY-AMGEN-MYSSP2020102761

PATIENT
  Age: 63 Year
  Sex: Female
  Weight: 62 kg

DRUGS (6)
  1. CORALAN [Suspect]
     Active Substance: IVABRADINE HYDROCHLORIDE
     Indication: CARDIAC FAILURE
     Dosage: 3.75 MG, BID
     Route: 048
     Dates: start: 20161019, end: 20161020
  2. CARDIPIRINA [Concomitant]
     Active Substance: ASPIRIN
     Indication: CARDIAC FAILURE
     Dosage: 1 DF, QD
     Dates: start: 20161019
  3. FUROSEMIDE. [Concomitant]
     Active Substance: FUROSEMIDE
     Indication: CARDIAC FAILURE
     Dosage: 1 DF, QD
     Dates: start: 20161019
  4. SPIRONOLACTONE. [Concomitant]
     Active Substance: SPIRONOLACTONE
     Indication: CARDIAC FAILURE
     Dosage: 1 DF, QD
     Dates: start: 20161019
  5. DIAMIDE [Concomitant]
     Indication: DIABETES MELLITUS
     Dosage: 1 DF, BID
     Dates: start: 20161019
  6. COVERSYL [Concomitant]
     Active Substance: PERINDOPRIL
     Indication: CARDIAC FAILURE
     Dosage: 5 MG, QD
     Dates: start: 20161019

REACTIONS (2)
  - Product use issue [Recovered/Resolved]
  - Torsade de pointes [Recovered/Resolved]

NARRATIVE: CASE EVENT DATE: 20161019
